FAERS Safety Report 18415527 (Version 1)
Quarter: 2020Q4

REPORT INFORMATION
  Report Type: Spontaneous
  Country: HR (occurrence: HR)
  Receive Date: 20201022
  Receipt Date: 20201022
  Transmission Date: 20210114
  Serious: Yes (Life-Threatening, Disabling)
  Sender: FDA-Public Use
  Company Number: HR-PFIZER INC-2020408445

PATIENT
  Age: 79 Year
  Sex: Male

DRUGS (10)
  1. NORMABEL [Concomitant]
     Active Substance: DIAZEPAM
     Indication: PROSTATE CANCER
     Dosage: 10 MG
     Route: 048
     Dates: start: 2018
  2. ALOPURINOL [Concomitant]
     Active Substance: ALLOPURINOL
     Indication: CHRONIC KIDNEY DISEASE
     Dosage: 100 MG, 1X/DAY
     Route: 048
     Dates: end: 2018
  3. LASIX [Concomitant]
     Active Substance: FUROSEMIDE
     Indication: ESSENTIAL HYPERTENSION
     Dosage: 40 MG; FREQ:.0.33 D;2,1,0
     Route: 048
     Dates: start: 2019
  4. ZALDIAR [Concomitant]
     Active Substance: ACETAMINOPHEN\TRAMADOL HYDROCHLORIDE
     Indication: POLYNEUROPATHY
     Dosage: 1 DF = 37,5 MG TRAMADOL CHORIDE AND 325 MG PARACETAMOL, 0,0,1
     Route: 048
     Dates: start: 20200930
  5. LYRICA [Suspect]
     Active Substance: PREGABALIN
     Dosage: 75 MG; FREQ:.0.5 D
     Route: 048
     Dates: start: 20201006, end: 20201007
  6. REGLAN [Concomitant]
     Active Substance: METOCLOPRAMIDE HYDROCHLORIDE
     Indication: GASTRITIS
     Dosage: 10 MG, AS NEEDED (1X1 FOR NAUSEA)
     Route: 048
     Dates: start: 20200930
  7. CO PERINEVA [Concomitant]
     Active Substance: INDAPAMIDE\PERINDOPRIL ERBUMINE
     Indication: ARTERIOSCLEROSIS
     Dosage: 1 DF = 2 MG PERINDOPRIL-TERT-BUTILAMIN AND 0,625 MG INDAPAMIDE1,0,0
     Route: 048
     Dates: start: 2020
  8. CONTROLOC [Concomitant]
     Active Substance: PANTOPRAZOLE SODIUM
     Indication: GASTROOESOPHAGEAL REFLUX DISEASE
     Dosage: 40 MG, 1X/DAY; 1,0,0
     Route: 048
     Dates: start: 20200629
  9. SORTIS [Concomitant]
     Active Substance: ATORVASTATIN
     Indication: ARTERIOSCLEROSIS
     Dosage: 20 MG
     Route: 048
     Dates: start: 2020
  10. LERCANIL [Concomitant]
     Active Substance: LERCANIDIPINE HYDROCHLORIDE
     Indication: ESSENTIAL HYPERTENSION
     Dosage: 10 MG; FREQ:.0.5 D
     Route: 048
     Dates: start: 2018

REACTIONS (7)
  - Gait disturbance [Recovered/Resolved with Sequelae]
  - Dysarthria [Recovered/Resolved with Sequelae]
  - Balance disorder [Recovered/Resolved with Sequelae]
  - Lack of spontaneous speech [Recovered/Resolved with Sequelae]
  - Confusional state [Recovered/Resolved with Sequelae]
  - Renal failure [Recovered/Resolved with Sequelae]
  - Gait inability [Recovered/Resolved with Sequelae]

NARRATIVE: CASE EVENT DATE: 20201006
